FAERS Safety Report 5536947-2 (Version None)
Quarter: 2007Q4

REPORT INFORMATION
  Report Type: 
  Country: None (occurrence: None)
  Receive Date: 20071207
  Receipt Date: 20071129
  Transmission Date: 20080405
  Serious: Yes (Other)
  Sender: FDA-Public Use
  Company Number: PHBS2007JP20227

PATIENT

DRUGS (5)
  1. TEGRETOL [Suspect]
     Indication: CONVULSION
     Dosage: 1200MG/D
     Route: 048
     Dates: start: 20070801, end: 20071101
  2. TEGRETOL [Suspect]
     Dosage: 200MG/D
     Route: 048
     Dates: start: 20071101
  3. RIVOTRIL [Concomitant]
  4. DEPAKENE [Concomitant]
  5. PHENYTOIN SODIUM CAP [Concomitant]

REACTIONS (1)
  - HYPOGLYCAEMIA [None]
